FAERS Safety Report 5618269-4 (Version None)
Quarter: 2008Q1

REPORT INFORMATION
  Report Type: 
  Country: None (occurrence: None)
  Receive Date: 20080206
  Receipt Date: 20080206
  Transmission Date: 20080703
  Serious: No
  Sender: FDA-Public Use
  Company Number: None

PATIENT
  Age: 14 Month
  Sex: Female
  Weight: 11.7935 kg

DRUGS (1)
  1. CEFDINIR [Suspect]
     Dosage: (DURATION: TOOK JUST ONE DOSE)
     Dates: start: 20080204, end: 20080204

REACTIONS (1)
  - VOMITING [None]
